FAERS Safety Report 5532072-5 (Version None)
Quarter: 2007Q4

REPORT INFORMATION
  Report Type: 
  Country: None (occurrence: None)
  Receive Date: 20071203
  Receipt Date: 20071123
  Transmission Date: 20080405
  Serious: Yes (Hospitalization)
  Sender: FDA-Public Use
  Company Number: B0497354A

PATIENT
  Age: 8 Year
  Sex: Male

DRUGS (5)
  1. AUGMENTIN '125' [Suspect]
     Indication: DRUG USE FOR UNKNOWN INDICATION
     Dosage: 1G PER DAY
     Route: 048
     Dates: start: 20071014, end: 20071022
  2. KEPPRA [Suspect]
     Indication: PAIN
     Dosage: 300ML PER DAY
     Route: 048
     Dates: start: 20071018, end: 20071022
  3. MORPHINE [Concomitant]
     Route: 065
  4. ERYTHROMYCIN [Concomitant]
     Route: 065
  5. LASIX [Concomitant]
     Route: 065

REACTIONS (5)
  - AGRANULOCYTOSIS [None]
  - BONE MARROW EOSINOPHILIC LEUKOCYTE COUNT INCREASED [None]
  - BONE MARROW FAILURE [None]
  - NEUTROPHIL COUNT DECREASED [None]
  - WHITE BLOOD CELL COUNT DECREASED [None]
